FAERS Safety Report 18731003 (Version 1)
Quarter: 2021Q1

REPORT INFORMATION
  Report Type: Spontaneous
  Country: US (occurrence: US)
  Receive Date: 20210112
  Receipt Date: 20210112
  Transmission Date: 20210419
  Serious: Yes (Other)
  Sender: FDA-Public Use
  Company Number: US-PURDUE-USA-2020-0196039

PATIENT
  Sex: Male

DRUGS (1)
  1. OXYCODONE HCL TABLETS (RHODES 91?490) [Suspect]
     Active Substance: OXYCODONE HYDROCHLORIDE
     Indication: PRODUCT USED FOR UNKNOWN INDICATION
     Dosage: UNK
     Route: 048

REACTIONS (16)
  - Drug dependence [Unknown]
  - Dry mouth [Unknown]
  - Pruritus [Unknown]
  - Stress [Unknown]
  - Headache [Unknown]
  - Feeling abnormal [Unknown]
  - Anxiety [Unknown]
  - Flushing [Unknown]
  - Aggression [Unknown]
  - Irritability [Unknown]
  - Depression [Unknown]
  - Mental disorder [Unknown]
  - Somnolence [Unknown]
  - Pain [Unknown]
  - Respiratory tract infection [Unknown]
  - Sleep disorder [Unknown]
